FAERS Safety Report 9877939 (Version 2)
Quarter: 2014Q1

REPORT INFORMATION
  Report Type: Spontaneous
  Country: BR (occurrence: BR)
  Receive Date: 20140206
  Receipt Date: 20140319
  Transmission Date: 20141002
  Serious: Yes (Hospitalization, Other)
  Sender: FDA-Public Use
  Company Number: BR-ABBVIE-14P-020-1196575-00

PATIENT
  Sex: Female
  Weight: 115 kg

DRUGS (8)
  1. ZEMPLAR [Suspect]
     Indication: HYPERPARATHYROIDISM SECONDARY
     Route: 042
     Dates: start: 201311
  2. ZEMPLAR [Suspect]
     Indication: HYPERPHOSPHATAEMIA
     Route: 042
  3. HEMAX [Concomitant]
     Indication: ANAEMIA
  4. PREDNISONE [Concomitant]
     Indication: SYSTEMIC LUPUS ERYTHEMATOSUS
  5. ACETYLSALICYLIC ACID [Concomitant]
     Indication: CORONARY ARTERY INSUFFICIENCY
  6. ATORVASTATIN [Concomitant]
     Indication: CORONARY ARTERY INSUFFICIENCY
  7. LOSARTAN [Concomitant]
     Indication: HYPERTENSION
  8. DIAZEPAM [Concomitant]
     Indication: INSOMNIA

REACTIONS (7)
  - Pain in extremity [Unknown]
  - Subcutaneous emphysema [Unknown]
  - Pain in extremity [Unknown]
  - Subclavian vein thrombosis [Recovering/Resolving]
  - Thrombosis in device [Unknown]
  - Musculoskeletal pain [Unknown]
  - Antiphospholipid syndrome [Unknown]
